FAERS Safety Report 10334559 (Version 1)
Quarter: 2014Q3

REPORT INFORMATION
  Report Type: Spontaneous
  Country: RU (occurrence: RU)
  Receive Date: 20140723
  Receipt Date: 20140723
  Transmission Date: 20150326
  Serious: Yes (Life-Threatening)
  Sender: FDA-Public Use
  Company Number: RU-TEVA-495651ISR

PATIENT
  Age: 35 Year
  Sex: Female

DRUGS (5)
  1. EQUORAL [Suspect]
     Active Substance: CYCLOSPORINE
     Route: 048
  2. PANIMUN BIORAL [Suspect]
     Active Substance: CYCLOSPORINE
     Route: 048
  3. RANITIDINE [Concomitant]
     Active Substance: RANITIDINE\RANITIDINE HYDROCHLORIDE
  4. NORMODIPINE [Concomitant]
  5. MYCOPHENOLATE MOFETIL. [Suspect]
     Active Substance: MYCOPHENOLATE MOFETIL
     Route: 048

REACTIONS (1)
  - Proteinuria [Unknown]
